FAERS Safety Report 15239230 (Version 1)
Quarter: 2018Q3

REPORT INFORMATION
  Report Type: Report from Study
  Country: ES (occurrence: ES)
  Receive Date: 20180803
  Receipt Date: 20180803
  Transmission Date: 20181010
  Serious: Yes (Other)
  Sender: FDA-Public Use
  Company Number: ES-MYLANLABS-2018M1057445

PATIENT
  Age: 27 Year
  Sex: Male

DRUGS (2)
  1. VARIDASA [Suspect]
     Active Substance: STREPTOKINASE-STREPTODORNASE
     Indication: UPPER RESPIRATORY TRACT INFLAMMATION
     Dosage: UNK
  2. PANTOPRAZOLE [Suspect]
     Active Substance: PANTOPRAZOLE
     Indication: UPPER RESPIRATORY TRACT INFLAMMATION
     Dosage: UNK

REACTIONS (1)
  - Pancreatitis acute [Recovered/Resolved]

NARRATIVE: CASE EVENT DATE: 20160610
